FAERS Safety Report 15374698 (Version 1)
Quarter: 2018Q3

REPORT INFORMATION
  Report Type: Spontaneous
  Country: HU (occurrence: HU)
  Receive Date: 20180912
  Receipt Date: 20180912
  Transmission Date: 20181010
  Serious: Yes (Hospitalization, Other)
  Sender: FDA-Public Use
  Company Number: HU-PFIZER INC-2018365960

PATIENT
  Sex: Male

DRUGS (3)
  1. CURAM DUO [Suspect]
     Active Substance: AMOXICILLIN\CLAVULANIC ACID
     Dosage: UNK
     Route: 065
  2. MEDROL [Concomitant]
     Active Substance: METHYLPREDNISOLONE
     Dosage: UNK
     Route: 065
  3. PANTOPRAZOLE [Suspect]
     Active Substance: PANTOPRAZOLE
     Dosage: UNK
     Route: 065

REACTIONS (8)
  - Cutaneous symptom [Unknown]
  - Oropharyngeal pain [Recovering/Resolving]
  - Skin mass [Recovering/Resolving]
  - Malaise [Unknown]
  - Urticaria [Unknown]
  - Pyrexia [Recovering/Resolving]
  - Rash [Unknown]
  - Spinal cord herniation [Not Recovered/Not Resolved]
